FAERS Safety Report 7678757-6 (Version None)
Quarter: 2011Q3

REPORT INFORMATION
  Report Type: 
  Country: None (occurrence: None)
  Receive Date: 20110811
  Receipt Date: 20110802
  Transmission Date: 20111222
  Serious: Yes (Other)
  Sender: FDA-Public Use
  Company Number: US-ASTRAZENECA-2011SE46457

PATIENT
  Sex: Male

DRUGS (1)
  1. SEROQUEL [Suspect]
     Indication: SLEEP DISORDER
     Route: 048

REACTIONS (7)
  - NIGHTMARE [None]
  - APPARENT DEATH [None]
  - HYPERHIDROSIS [None]
  - HYPERSOMNIA [None]
  - ASTHMA [None]
  - CONVULSION [None]
  - MENTAL DISORDER [None]
